FAERS Safety Report 15851344 (Version 1)
Quarter: 2019Q1

REPORT INFORMATION
  Report Type: Spontaneous
  Country: DE (occurrence: DE)
  Receive Date: 20190122
  Receipt Date: 20190122
  Transmission Date: 20190417
  Serious: Yes (Death, Hospitalization, Other)
  Sender: FDA-Public Use
  Company Number: DE-TEVA-2019-DE-1001848

PATIENT
  Age: 79 Year
  Sex: Female
  Weight: 70 kg

DRUGS (1)
  1. IBUPROFEN 600 MG [Suspect]
     Active Substance: IBUPROFEN
     Dosage: 1600 MILLIGRAM DAILY; 600 MG 4 X 1/2400 MG/DAY FOR ONE WEEK
     Route: 048
     Dates: start: 20180404, end: 20180411

REACTIONS (4)
  - Hypotonia [Unknown]
  - Aplastic anaemia [Fatal]
  - Dizziness [Unknown]
  - Jaundice [Unknown]

NARRATIVE: CASE EVENT DATE: 201804
